FAERS Safety Report 6498743-1 (Version None)
Quarter: 2009Q4

REPORT INFORMATION
  Report Type: 
  Country: None (occurrence: None)
  Receive Date: 20091215
  Receipt Date: 20091204
  Transmission Date: 20100525
  Serious: Yes (Hospitalization)
  Sender: FDA-Public Use
  Company Number: JP-PFIZER INC-2009307404

PATIENT
  Age: 58 Year
  Sex: Male

DRUGS (5)
  1. CHAMPIX [Suspect]
     Indication: NICOTINE DEPENDENCE
     Dosage: UNK
     Route: 048
     Dates: start: 20090911, end: 20091203
  2. SELBEX [Suspect]
     Dosage: UNK
     Route: 048
     Dates: start: 20090911, end: 20091203
  3. PLETAL [Concomitant]
  4. MYSLEE [Concomitant]
  5. PLAVIX [Concomitant]

REACTIONS (1)
  - INTERSTITIAL LUNG DISEASE [None]
